FAERS Safety Report 9892004 (Version 1)
Quarter: 2014Q1

REPORT INFORMATION
  Report Type: Spontaneous
  Country: US (occurrence: None)
  Receive Date: 20140210
  Receipt Date: 20140210
  Transmission Date: 20141002
  Serious: Yes (Other)
  Sender: FDA-Public Use
  Company Number: AUR-APL-2014-01369

PATIENT
  Age: 20 Year
  Sex: Female

DRUGS (1)
  1. MONTELUKAST (MONTELUKAST) [Suspect]
     Indication: PRODUCT USED FOR UNKNOWN INDICATION
     Route: 048
     Dates: start: 20140129, end: 20140130

REACTIONS (4)
  - Cold sweat [None]
  - Feeling abnormal [None]
  - Depression [None]
  - Thinking abnormal [None]
